FAERS Safety Report 10225135 (Version 1)
Quarter: 2014Q2

REPORT INFORMATION
  Report Type: Spontaneous
  Country: DE (occurrence: DE)
  Receive Date: 20140609
  Receipt Date: 20140609
  Transmission Date: 20141212
  Serious: Yes (Other)
  Sender: FDA-Public Use
  Company Number: DE-BRISTOL-MYERS SQUIBB COMPANY-20866414

PATIENT
  Sex: Female

DRUGS (1)
  1. YERVOY [Suspect]
     Dates: start: 201305

REACTIONS (4)
  - Colitis [Recovered/Resolved]
  - Hypophysitis [Recovered/Resolved]
  - Thyroid disorder [Recovered/Resolved]
  - Depression [Recovered/Resolved]
